FAERS Safety Report 6163208-3 (Version None)
Quarter: 2009Q2

REPORT INFORMATION
  Report Type: 
  Country: None (occurrence: None)
  Receive Date: 20090420
  Receipt Date: 20090420
  Transmission Date: 20091009
  Serious: No
  Sender: FDA-Public Use
  Company Number: None

PATIENT
  Age: 63 Year
  Sex: Male
  Weight: 95.3 kg

DRUGS (4)
  1. VARENICLINE [Suspect]
     Indication: SMOKING CESSATION THERAPY
     Dosage: 1 MG BID PO
     Route: 048
     Dates: start: 20070819, end: 20080430
  2. ALBUTEROL/IPRATROPIUM ORAL INHALER [Concomitant]
  3. FORMOTEROL INH PWDR CAP [Concomitant]
  4. MOMETASONE FUROATE ORAL INHAL PWDR [Concomitant]

REACTIONS (4)
  - ABDOMINAL PAIN [None]
  - ABNORMAL DREAMS [None]
  - CONSTIPATION [None]
  - NIGHTMARE [None]
